FAERS Safety Report 12605977 (Version 4)
Quarter: 2017Q1

REPORT INFORMATION
  Report Type: Spontaneous
  Country: US (occurrence: US)
  Receive Date: 20160729
  Receipt Date: 20170228
  Transmission Date: 20170428
  Serious: No
  Sender: FDA-Public Use
  Company Number: US-PFIZER INC-2016342076

PATIENT
  Age: 71 Year
  Sex: Male

DRUGS (2)
  1. SUTENT [Suspect]
     Active Substance: SUNITINIB MALATE
     Indication: RENAL CANCER
     Dosage: 37.5 MG, 1X/DAY
     Route: 048
     Dates: start: 20151211, end: 20170222
  2. SUTENT [Suspect]
     Active Substance: SUNITINIB MALATE
     Dosage: 37.5 MG, CYCLIC (ONCE DAILY FOR 4 WEEKS AND 2 WEEKS OFF, REPEAT)
     Route: 048
     Dates: start: 20160106

REACTIONS (4)
  - Ageusia [Unknown]
  - Dysgeusia [Unknown]
  - Asthenia [Unknown]
  - Neoplasm progression [Unknown]
